FAERS Safety Report 4420944-4 (Version None)
Quarter: 2004Q3

REPORT INFORMATION
  Report Type: 
  Country: None (occurrence: None)
  Receive Date: 20040809
  Receipt Date: 20040804
  Transmission Date: 20050211
  Serious: Yes (Hospitalization)
  Sender: FDA-Public Use
  Company Number: DE-JNJFOC-20040706115

PATIENT
  Age: 40 Year
  Sex: Male

DRUGS (4)
  1. REMICADE [Suspect]
     Route: 042
     Dates: start: 20040218
  2. REMICADE [Suspect]
     Route: 042
     Dates: start: 20040218
  3. REMICADE [Suspect]
     Route: 042
     Dates: start: 20040218
  4. REMICADE [Suspect]
     Indication: ANKYLOSING SPONDYLITIS
     Route: 042
     Dates: start: 20040218

REACTIONS (3)
  - GASTROINTESTINAL DISORDER [None]
  - PROSTATITIS [None]
  - PYREXIA [None]
